FAERS Safety Report 8298609-0 (Version None)
Quarter: 2012Q2

REPORT INFORMATION
  Report Type: 
  Country: None (occurrence: None)
  Receive Date: 20120419
  Receipt Date: 20120410
  Transmission Date: 20120825
  Serious: Yes (Other)
  Sender: FDA-Public Use
  Company Number: DE-ASTRAZENECA-2012SE23287

PATIENT
  Age: 78 Year
  Sex: Female
  Weight: 103 kg

DRUGS (11)
  1. SYMBICORT [Suspect]
     Indication: CHRONIC OBSTRUCTIVE PULMONARY DISEASE
     Dosage: 1 DOSAGE FORM TWO TIMES A DAY
     Route: 055
     Dates: start: 20080501, end: 20080704
  2. METOPROLOL-RATIOPHARM 100 [Concomitant]
     Indication: HYPERTENSION
     Route: 048
  3. ALLOPURINOL [Concomitant]
     Indication: HYPERURICAEMIA
     Route: 048
  4. VIT D3 [Concomitant]
     Indication: OSTEOPOROSIS PROPHYLAXIS
     Dosage: UNKOWN DOSE EVERY DAY
     Route: 048
  5. ENALAPRIL MALEATE [Concomitant]
     Indication: HYPERTENSION
     Route: 048
  6. VOLTAREN [Interacting]
     Indication: BACK PAIN
     Route: 048
  7. SALBUTAMOL STADA FERTIGINHALAT [Concomitant]
     Indication: CHRONIC OBSTRUCTIVE PULMONARY DISEASE
     Route: 055
     Dates: start: 20080501, end: 20080704
  8. VERTIGOHEEL [Concomitant]
     Indication: DIZZINESS
     Route: 048
     Dates: start: 20080501
  9. CEDUR RETARD [Concomitant]
     Indication: HYPERCHOLESTEROLAEMIA
     Route: 048
  10. TORACARD [Concomitant]
     Indication: OEDEMA
     Route: 048
  11. MOXONIDIN [Concomitant]
     Indication: HYPERTENSION
     Route: 048

REACTIONS (4)
  - DRUG INTERACTION [None]
  - NAUSEA [None]
  - RETCHING [None]
  - ANXIETY [None]
